FAERS Safety Report 6805755-4 (Version None)
Quarter: 2010Q2

REPORT INFORMATION
  Report Type: 
  Country: None (occurrence: None)
  Receive Date: 20100628
  Receipt Date: 20100623
  Transmission Date: 20101027
  Serious: Yes (Other)
  Sender: FDA-Public Use
  Company Number: FR-BRISTOL-MYERS SQUIBB COMPANY-15164775

PATIENT
  Sex: Female

DRUGS (1)
  1. LYSODREN [Suspect]

REACTIONS (1)
  - HEPATITIS [None]
